FAERS Safety Report 6160117-0 (Version None)
Quarter: 2009Q2

REPORT INFORMATION
  Report Type: 
  Country: None (occurrence: None)
  Receive Date: 20090420
  Receipt Date: 20090410
  Transmission Date: 20091009
  Serious: Yes (Death, Hospitalization, Congenital Anomaly)
  Sender: FDA-Public Use
  Company Number: A0620719A

PATIENT
  Sex: Male

DRUGS (7)
  1. PAXIL CR [Suspect]
     Indication: DEPRESSION
     Dosage: 25MG PER DAY
     Dates: start: 20031205, end: 20041101
  2. PAROXETINE HYDROCHLORIDE [Suspect]
     Indication: DEPRESSION
  3. GLYBURIDE AND METFORMIN HCL [Concomitant]
     Dosage: 2TAB TWICE PER DAY
     Dates: start: 20031219
  4. ACCUPRIL [Concomitant]
     Dosage: 5MG PER DAY
     Dates: start: 20031114
  5. INSULIN [Concomitant]
  6. VITAMIN TAB [Concomitant]
  7. ROBITUSSIN [Concomitant]

REACTIONS (11)
  - CARDIAC DISORDER [None]
  - CONGENITAL PULMONARY ARTERY ANOMALY [None]
  - CONGENITAL TRACHEOMALACIA [None]
  - DRUG EXPOSURE DURING PREGNANCY [None]
  - HEART DISEASE CONGENITAL [None]
  - MULTIPLE CONGENITAL ABNORMALITIES [None]
  - PULMONARY HYPERTENSION [None]
  - PULMONARY MALFORMATION [None]
  - RIGHT AORTIC ARCH [None]
  - TRUNCUS ARTERIOSUS PERSISTENT [None]
  - VENTRICULAR SEPTAL DEFECT [None]
